FAERS Safety Report 8417439-X (Version None)
Quarter: 2012Q2

REPORT INFORMATION
  Report Type: 
  Country: None (occurrence: None)
  Receive Date: 20120606
  Receipt Date: 20120530
  Transmission Date: 20120825
  Serious: Yes (Other)
  Sender: FDA-Public Use
  Company Number: US-GILEAD-2012-0052912

PATIENT
  Sex: Male

DRUGS (1)
  1. LETAIRIS [Suspect]
     Indication: PRODUCT USED FOR UNKNOWN INDICATION
     Dosage: 10 MG, UNK
     Route: 048
     Dates: start: 20120103

REACTIONS (8)
  - PRESYNCOPE [None]
  - DYSPNOEA [None]
  - PROSTATE CANCER [None]
  - TRANSFUSION [None]
  - DIZZINESS [None]
  - JOINT INJURY [None]
  - NOCTURIA [None]
  - SYNCOPE [None]
